FAERS Safety Report 7620414-6 (Version None)
Quarter: 2011Q3

REPORT INFORMATION
  Report Type: 
  Country: None (occurrence: None)
  Receive Date: 20110719
  Receipt Date: 20110715
  Transmission Date: 20111222
  Serious: Yes (Death, Hospitalization)
  Sender: FDA-Public Use
  Company Number: PHEH2009US11185

PATIENT
  Sex: Female

DRUGS (1)
  1. EXJADE [Suspect]
     Indication: NEOPLASM
     Dosage: 1500 MG, QD
     Route: 048
     Dates: start: 20080905, end: 20090821

REACTIONS (5)
  - DEAFNESS [None]
  - DIARRHOEA [None]
  - DEATH [None]
  - VISUAL IMPAIRMENT [None]
  - CONSTIPATION [None]
